FAERS Safety Report 8301082-7 (Version None)
Quarter: 2012Q2

REPORT INFORMATION
  Report Type: 
  Country: None (occurrence: None)
  Receive Date: 20120420
  Receipt Date: 20120411
  Transmission Date: 20120825
  Serious: Yes (Hospitalization, Other)
  Sender: FDA-Public Use
  Company Number: NL-MEDIMMUNE-MEDI-0014104

PATIENT
  Sex: Male
  Weight: 5.045 kg

DRUGS (3)
  1. SYNAGIS [Suspect]
     Indication: HEART DISEASE CONGENITAL
     Route: 030
     Dates: start: 20111010, end: 20111108
  2. XYLOMETAZOLINE HYDROCHLORIDE [Concomitant]
  3. SYNAGIS [Suspect]
     Route: 030
     Dates: start: 20111223, end: 20120316

REACTIONS (5)
  - PULMONARY HYPERTENSION [None]
  - VASOCONSTRICTION [None]
  - ADENOIDITIS [None]
  - DYSPNOEA [None]
  - CARDIAC SEPTAL DEFECT [None]
